FAERS Safety Report 4988795-X (Version None)
Quarter: 2006Q2

REPORT INFORMATION
  Report Type: 
  Country: None (occurrence: None)
  Receive Date: 20060502
  Receipt Date: 20060302
  Transmission Date: 20061013
  Serious: Yes (Hospitalization)
  Sender: FDA-Public Use
  Company Number: US-MERCK-0603USA00529

PATIENT
  Age: 79 Year
  Sex: Female
  Weight: 57 kg

DRUGS (2)
  1. VIOXX [Suspect]
     Indication: ARTHRITIS
     Route: 048
  2. TUMS [Concomitant]
     Route: 065

REACTIONS (14)
  - ARTHROPATHY [None]
  - BARRETT'S OESOPHAGUS [None]
  - CEREBROVASCULAR ACCIDENT [None]
  - DEPRESSION [None]
  - GASTRIC ULCER [None]
  - GASTRITIS [None]
  - GASTROINTESTINAL HAEMORRHAGE [None]
  - HIATUS HERNIA [None]
  - HIP FRACTURE [None]
  - HYPERTENSION [None]
  - OESOPHAGEAL STENOSIS [None]
  - OSTEOARTHRITIS [None]
  - OSTEOPOROSIS [None]
  - PULMONARY EMBOLISM [None]
